FAERS Safety Report 8087950-2 (Version None)
Quarter: 2012Q1

REPORT INFORMATION
  Report Type: 
  Country: None (occurrence: None)
  Receive Date: 20120130
  Receipt Date: 20120120
  Transmission Date: 20120608
  Serious: Yes (Hospitalization, Other)
  Sender: FDA-Public Use
  Company Number: US-ASTRAZENECA-2012SE01254

PATIENT
  Age: 70 Year
  Sex: Female

DRUGS (2)
  1. NEXIUM [Suspect]
     Route: 048
  2. NEXIUM [Suspect]
     Route: 048

REACTIONS (5)
  - DIABETES MELLITUS [None]
  - DRUG DOSE OMISSION [None]
  - GASTRITIS [None]
  - SELF-MEDICATION [None]
  - POLYP [None]
